FAERS Safety Report 24205433 (Version 1)
Quarter: 2024Q3

REPORT INFORMATION
  Report Type: Report from Study
  Country: NL (occurrence: NL)
  Receive Date: 20240813
  Receipt Date: 20240813
  Transmission Date: 20241016
  Serious: Yes (Hospitalization)
  Sender: BIOVITRUM
  Company Number: NL-AstraZeneca-2023A035304

PATIENT
  Sex: Female
  Weight: 3.2 kg

DRUGS (3)
  1. SYNAGIS [Suspect]
     Active Substance: PALIVIZUMAB
     Indication: Premature baby
     Dosage: MONTHLY
     Route: 030
     Dates: start: 20230111
  2. FERROCHL DRANK [Concomitant]
     Indication: Product used for unknown indication
     Dosage: FERROUS BISGLYCINATE: 45.0MG/ML
  3. TRAFLOXAL EDO OOGDR [Concomitant]
     Indication: Product used for unknown indication

REACTIONS (1)
  - Respiratory tract infection [Recovered/Resolved]
